FAERS Safety Report 22281893 (Version 1)
Quarter: 2023Q2

REPORT INFORMATION
  Report Type: Spontaneous
  Country: US (occurrence: US)
  Receive Date: 20230504
  Receipt Date: 20230504
  Transmission Date: 20230722
  Serious: No
  Sender: FDA-Public Use
  Company Number: US-ABBVIE-4726225

PATIENT
  Age: 33 Year
  Sex: Female
  Weight: 77 kg

DRUGS (2)
  1. HUMIRA [Suspect]
     Active Substance: ADALIMUMAB
     Indication: Crohn^s disease
     Route: 058
     Dates: start: 202011
  2. CELEXA [Concomitant]
     Active Substance: CITALOPRAM HYDROBROMIDE
     Indication: Product used for unknown indication

REACTIONS (8)
  - Maternal exposure during pregnancy [Unknown]
  - Crohn^s disease [Recovered/Resolved]
  - Infection [Recovering/Resolving]
  - Abdominal discomfort [Recovering/Resolving]
  - COVID-19 [Recovered/Resolved]
  - Crohn^s disease [Recovering/Resolving]
  - Live birth [Unknown]
  - Foetal malposition [Recovered/Resolved]

NARRATIVE: CASE EVENT DATE: 20220501
